FAERS Safety Report 5874722-X (Version None)
Quarter: 2008Q3

REPORT INFORMATION
  Report Type: 
  Country: None (occurrence: None)
  Receive Date: 20080909
  Receipt Date: 20080830
  Transmission Date: 20090109
  Serious: Yes (Disabling)
  Sender: FDA-Public Use
  Company Number: BR-BAYER-BR-2007-005491

PATIENT
  Age: 45 Year
  Sex: Female

DRUGS (5)
  1. BETAFERON [Suspect]
     Indication: MULTIPLE SCLEROSIS
     Dosage: UNIT DOSE: 1 ML
     Route: 058
     Dates: start: 19971001, end: 20080701
  2. ANSITEC [Concomitant]
     Indication: ANXIETY
     Route: 048
     Dates: start: 19970101
  3. TEGRETOL [Concomitant]
     Indication: DRUG USE FOR UNKNOWN INDICATION
     Route: 048
     Dates: start: 19970101
  4. RIVOTRIL [Concomitant]
     Indication: DRUG USE FOR UNKNOWN INDICATION
     Route: 065
  5. EDUCSON [Concomitant]
     Indication: DRUG USE FOR UNKNOWN INDICATION
     Route: 065

REACTIONS (13)
  - ALOPECIA [None]
  - ASTHENIA [None]
  - BLINDNESS UNILATERAL [None]
  - BURNING SENSATION [None]
  - COORDINATION ABNORMAL [None]
  - GAIT DISTURBANCE [None]
  - HEADACHE [None]
  - HYPOAESTHESIA [None]
  - MOVEMENT DISORDER [None]
  - MUSCLE FATIGUE [None]
  - NEUROMYELITIS OPTICA [None]
  - VISION BLURRED [None]
  - VISUAL ACUITY REDUCED [None]
